FAERS Safety Report 11160008 (Version 1)
Quarter: 2015Q2

REPORT INFORMATION
  Report Type: Spontaneous
  Country: JP (occurrence: JP)
  Receive Date: 20150603
  Receipt Date: 20150603
  Transmission Date: 20150821
  Serious: Yes (Hospitalization)
  Sender: FDA-Public Use
  Company Number: PHJP2015JP008748

PATIENT
  Age: 13 Year
  Sex: Male

DRUGS (1)
  1. VOLTAREN EX TAPE [Suspect]
     Active Substance: DICLOFENAC SODIUM
     Indication: BACK PAIN
     Dosage: 0.5 SHEET, UNK
     Route: 061

REACTIONS (2)
  - Wrong technique in drug usage process [Unknown]
  - Blood creatine phosphokinase increased [Unknown]
